FAERS Safety Report 7396843-5 (Version None)
Quarter: 2011Q1

REPORT INFORMATION
  Report Type: 
  Country: None (occurrence: None)
  Receive Date: 20110328
  Receipt Date: 20110317
  Transmission Date: 20110831
  Serious: Yes (Other)
  Sender: FDA-Public Use
  Company Number: DSA_44938_2011

PATIENT
  Age: 49 Year
  Sex: Female

DRUGS (4)
  1. CHANTIX [Suspect]
     Indication: SMOKING CESSATION THERAPY
     Dosage: (0.5 MG ORAL), (DF ORAL)
     Route: 048
     Dates: start: 20110116, end: 20110101
  2. CHANTIX [Suspect]
     Indication: SMOKING CESSATION THERAPY
     Dosage: (0.5 MG ORAL), (DF ORAL)
     Route: 048
     Dates: start: 20110103, end: 20110107
  3. TYLENOL (CAPLET) [Concomitant]
  4. WELLBUTRIN [Suspect]
     Indication: PRODUCT USED FOR UNKNOWN INDICATION
     Dosage: (DF)

REACTIONS (8)
  - AGGRESSION [None]
  - AGITATION [None]
  - BLISTER [None]
  - RASH [None]
  - NERVOUSNESS [None]
  - SLEEP DISORDER [None]
  - ANGER [None]
  - ANXIETY [None]
